FAERS Safety Report 5644943-X (Version None)
Quarter: 2008Q1

REPORT INFORMATION
  Report Type: 
  Country: None (occurrence: None)
  Receive Date: 20080229
  Receipt Date: 20071112
  Transmission Date: 20080703
  Serious: No
  Sender: FDA-Public Use
  Company Number: A0693906A

PATIENT
  Age: 36 Year
  Sex: Male

DRUGS (2)
  1. VALTREX [Suspect]
     Dosage: 1000MG VARIABLE DOSE
     Route: 048
     Dates: start: 20061101
  2. NO CONCURRENT MEDICATION [Concomitant]

REACTIONS (7)
  - DYSPNOEA [None]
  - HEADACHE [None]
  - NAIL DISCOLOURATION [None]
  - NECK PAIN [None]
  - OVERDOSE [None]
  - PARAESTHESIA [None]
  - PHARYNGOLARYNGEAL PAIN [None]
